FAERS Safety Report 5378243-2 (Version None)
Quarter: 2007Q3

REPORT INFORMATION
  Report Type: 
  Country: None (occurrence: None)
  Receive Date: 20070702
  Receipt Date: 20070620
  Transmission Date: 20080115
  Serious: Yes (Hospitalization, Disabling, Other)
  Sender: FDA-Public Use
  Company Number: 163-21880-07061126

PATIENT
  Age: 79 Year
  Sex: Female

DRUGS (19)
  1. REVLIMID [Suspect]
     Indication: MULTIPLE MYELOMA
     Dosage: 25 MG, DAILY X 21 DAYS, ORAL
     Route: 048
     Dates: start: 20070513, end: 20070529
  2. DEXAMETHASONE TAB [Concomitant]
  3. LOVENOX [Concomitant]
  4. ATIVAN [Concomitant]
  5. TRAZODONE HCL [Concomitant]
  6. RISPERDAL [Concomitant]
  7. IVF (GLUCOSE) [Concomitant]
  8. LASIX [Concomitant]
  9. ENOXAPARIN SODIUM [Concomitant]
  10. ASPIRIN [Concomitant]
  11. CARVEDILOL [Concomitant]
  12. CALCIUM BICARBONATE (CALCIUM HYDROGENCARBONATE) [Concomitant]
  13. MULTIVITAMIN [Concomitant]
  14. SYNTHROID [Concomitant]
  15. ALLOPURINOL [Concomitant]
  16. TUMS (CALCIUM CARBONATE) [Concomitant]
  17. COREG [Concomitant]
  18. ATARAX [Concomitant]
  19. ZYRTEC [Concomitant]

REACTIONS (25)
  - ACUTE RESPIRATORY FAILURE [None]
  - ASTHENIA [None]
  - BONE PAIN [None]
  - BRADYCARDIA [None]
  - CONSTIPATION [None]
  - DECREASED APPETITE [None]
  - DEHYDRATION [None]
  - DERMATITIS [None]
  - FATIGUE [None]
  - HEADACHE [None]
  - HEPATIC STEATOSIS [None]
  - HIATUS HERNIA [None]
  - HYDRONEPHROSIS [None]
  - HYPERTENSION [None]
  - HYPOTENSION [None]
  - MENTAL STATUS CHANGES [None]
  - NEUROPATHY PERIPHERAL [None]
  - OSTEOPENIA [None]
  - PNEUMONIA ASPIRATION [None]
  - RENAL FAILURE ACUTE [None]
  - SEPSIS [None]
  - STAPHYLOCOCCAL INFECTION [None]
  - SUPRAVENTRICULAR TACHYCARDIA [None]
  - SWELLING [None]
  - T-CELL LYMPHOMA [None]
